FAERS Safety Report 24977686 (Version 1)
Quarter: 2025Q1

REPORT INFORMATION
  Report Type: Spontaneous
  Country: FR (occurrence: FR)
  Receive Date: 20250217
  Receipt Date: 20250217
  Transmission Date: 20250409
  Serious: Yes (Death, Life-Threatening)
  Sender: MYLAN
  Company Number: None

PATIENT
  Age: 68 Year
  Sex: Male
  Weight: 110 kg

DRUGS (33)
  1. ATORVASTATIN [Suspect]
     Active Substance: ATORVASTATIN
     Indication: Dyslipidaemia
     Dosage: 80 MILLIGRAM, QD
     Route: 048
     Dates: start: 2024, end: 20241230
  2. PROPOFOL [Concomitant]
     Active Substance: PROPOFOL
     Route: 042
     Dates: start: 20241202, end: 20241203
  3. PROPOFOL [Concomitant]
     Active Substance: PROPOFOL
     Route: 042
     Dates: start: 20241208, end: 20241211
  4. PROPOFOL [Concomitant]
     Active Substance: PROPOFOL
     Route: 042
     Dates: start: 20241214, end: 20250106
  5. ACUPAN [Concomitant]
     Active Substance: NEFOPAM HYDROCHLORIDE
     Route: 042
     Dates: start: 20241213, end: 20241222
  6. ACUPAN [Concomitant]
     Active Substance: NEFOPAM HYDROCHLORIDE
     Route: 042
     Dates: start: 20250102, end: 20250105
  7. ACETAMINOPHEN [Concomitant]
     Active Substance: ACETAMINOPHEN
     Route: 042
     Dates: start: 20241213, end: 20250106
  8. SUFENTANIL [Concomitant]
     Active Substance: SUFENTANIL
     Route: 042
     Dates: start: 20241202, end: 20241207
  9. SUFENTANIL [Concomitant]
     Active Substance: SUFENTANIL
     Route: 042
     Dates: start: 20241209, end: 20241217
  10. SUFENTANIL [Concomitant]
     Active Substance: SUFENTANIL
     Route: 042
     Dates: start: 20241222, end: 20250106
  11. ATRACURIUM [Concomitant]
     Active Substance: ATRACURIUM
     Route: 042
     Dates: start: 20241202, end: 20241212
  12. ATRACURIUM [Concomitant]
     Active Substance: ATRACURIUM
     Route: 042
     Dates: start: 20241222, end: 20241223
  13. ARGIPRESSIN ACETATE [Concomitant]
     Route: 042
     Dates: start: 20241202, end: 20241205
  14. NOREPINEPHRINE BITARTRATE [Concomitant]
     Active Substance: NOREPINEPHRINE BITARTRATE
     Route: 042
     Dates: start: 20241202, end: 20241211
  15. NOREPINEPHRINE BITARTRATE [Concomitant]
     Active Substance: NOREPINEPHRINE BITARTRATE
     Route: 042
     Dates: start: 20241212, end: 20250105
  16. URAPIDIL [Concomitant]
     Active Substance: URAPIDIL
     Route: 042
     Dates: start: 20241211, end: 20241214
  17. PIPERACILLIN SODIUM\TAZOBACTAM SODIUM [Concomitant]
     Active Substance: PIPERACILLIN SODIUM\TAZOBACTAM SODIUM
     Route: 042
     Dates: start: 20241202, end: 20241205
  18. CEFOTAXIME SODIUM [Concomitant]
     Active Substance: CEFOTAXIME SODIUM
     Route: 065
     Dates: start: 20241205, end: 20241216
  19. CEFEPIME [Concomitant]
     Active Substance: CEFEPIME HYDROCHLORIDE
     Route: 065
     Dates: start: 20241217, end: 20241219
  20. LINEZOLID [Concomitant]
     Active Substance: LINEZOLID
     Route: 065
     Dates: start: 20241221, end: 20241229
  21. MEROPENEM ANHYDROUS [Concomitant]
     Active Substance: MEROPENEM ANHYDROUS
     Route: 065
     Dates: start: 20241222, end: 20241229
  22. ERYTHROMYCIN [Concomitant]
     Active Substance: ERYTHROMYCIN
     Dosage: 250 MILLIGRAM, Q8H
     Route: 065
     Dates: start: 20241231, end: 20250103
  23. HYDROCORTISONE HEMISUCCINATE [Concomitant]
     Active Substance: HYDROCORTISONE HEMISUCCINATE
     Route: 042
     Dates: start: 20241202, end: 20241210
  24. HYDROCORTISONE HEMISUCCINATE [Concomitant]
     Active Substance: HYDROCORTISONE HEMISUCCINATE
     Route: 042
     Dates: start: 20241225, end: 20250105
  25. LEVOTHYROXINE SODIUM [Concomitant]
     Active Substance: LEVOTHYROXINE SODIUM
     Route: 065
     Dates: start: 20241202, end: 20250105
  26. ASPIRIN [Concomitant]
     Active Substance: ASPIRIN
     Route: 065
     Dates: start: 20241202, end: 20250105
  27. HEPARIN CALCIUM [Concomitant]
     Active Substance: HEPARIN CALCIUM
     Dosage: 5000 INTERNATIONAL UNIT, BID (2 TIMES DAILY)
     Route: 058
     Dates: start: 20241202, end: 20250105
  28. POLYETHYLENE GLYCOL 4000 [Concomitant]
     Active Substance: POLYETHYLENE GLYCOL 4000
     Route: 065
     Dates: start: 20241207, end: 20241217
  29. PANTOPRAZOLE [Concomitant]
     Active Substance: PANTOPRAZOLE
     Route: 042
     Dates: start: 20241202, end: 20241212
  30. PANTOPRAZOLE [Concomitant]
     Active Substance: PANTOPRAZOLE
     Route: 065
     Dates: start: 20250103, end: 20250105
  31. ONDANSETRON [Concomitant]
     Active Substance: ONDANSETRON
     Route: 042
     Dates: start: 20241230, end: 20250103
  32. 1,3,5-TRIMETHOXYBENZENE [Concomitant]
     Active Substance: 1,3,5-TRIMETHOXYBENZENE
     Route: 065
     Dates: start: 20241211, end: 20241214
  33. FUROSEMIDE [Concomitant]
     Active Substance: FUROSEMIDE
     Route: 065
     Dates: start: 20241216, end: 20241217

REACTIONS (1)
  - Rhabdomyolysis [Fatal]

NARRATIVE: CASE EVENT DATE: 20241202
